FAERS Safety Report 10151101 (Version 1)
Quarter: 2014Q2

REPORT INFORMATION
  Report Type: Spontaneous
  Country: US (occurrence: US)
  Receive Date: 20140502
  Receipt Date: 20140502
  Transmission Date: 20141212
  Serious: Yes (Other)
  Sender: FDA-Public Use
  Company Number: US-BAYER-2014-064716

PATIENT
  Age: 48 Year
  Sex: Female
  Weight: 105.67 kg

DRUGS (3)
  1. YAZ [Suspect]
  2. BEYAZ [Suspect]
  3. FLUTICASONE [Concomitant]
     Dosage: 50 MCG, UNK

REACTIONS (1)
  - Pulmonary embolism [Recovered/Resolved]
